FAERS Safety Report 6065712-5 (Version None)
Quarter: 2009Q1

REPORT INFORMATION
  Report Type: 
  Country: None (occurrence: None)
  Receive Date: 20090130
  Receipt Date: 20090121
  Transmission Date: 20090719
  Serious: Yes (Other)
  Sender: FDA-Public Use
  Company Number: PHHY2009GB02648

PATIENT
  Sex: Female

DRUGS (2)
  1. TEGRETOL [Suspect]
     Dosage: 400 MG, BID, ORAL
     Route: 048
  2. AZITHROMYCIN [Suspect]
     Dosage: 500 MG, BID

REACTIONS (2)
  - ATAXIA [None]
  - GAIT DISTURBANCE [None]
